FAERS Safety Report 9601590 (Version 1)
Quarter: 2013Q4

REPORT INFORMATION
  Report Type: Spontaneous
  Country: GB (occurrence: None)
  Receive Date: 20131002
  Receipt Date: 20131002
  Transmission Date: 20140711
  Serious: Yes (Other)
  Sender: FDA-Public Use
  Company Number: AUR-APL-2013-07964

PATIENT
  Age: 65 Year
  Sex: Male
  Weight: 89.4 kg

DRUGS (2)
  1. SIMVASTATIN (SIMVASTATIN) [Suspect]
     Indication: PRODUCT USED FOR UNKNOWN INDICATION
     Dates: start: 20130823
  2. ATORVASTATIN (ATORVASTATIN) [Concomitant]

REACTIONS (3)
  - Body temperature increased [None]
  - Paraesthesia [None]
  - Paraesthesia [None]
